FAERS Safety Report 16720257 (Version 3)
Quarter: 2019Q3

REPORT INFORMATION
  Report Type: Spontaneous
  Country: RO (occurrence: RO)
  Receive Date: 20190820
  Receipt Date: 20190919
  Transmission Date: 20191005
  Serious: Yes (Other)
  Sender: FDA-Public Use
  Company Number: RO-PFIZER INC-2019354576

PATIENT
  Age: 71 Year
  Sex: Male
  Weight: 90 kg

DRUGS (3)
  1. SUTENT [Suspect]
     Active Substance: SUNITINIB MALATE
     Indication: METASTATIC RENAL CELL CARCINOMA
     Dosage: 25 MG, CYCLIC (21 DAYS OF TREATMENT AND 14 DAYS OF PAUSE)
     Route: 048
     Dates: start: 20180112
  2. LAGOSA [Concomitant]
     Active Substance: DIETARY SUPPLEMENT\HERBALS\MILK THISTLE
     Dosage: UNK
  3. ATACAND [Concomitant]
     Active Substance: CANDESARTAN CILEXETIL
     Dosage: 8 MG, UNK

REACTIONS (2)
  - Myxoedema [Recovering/Resolving]
  - Autoimmune thyroiditis [Recovering/Resolving]

NARRATIVE: CASE EVENT DATE: 20190730
